FAERS Safety Report 10181761 (Version 1)
Quarter: 2014Q2

REPORT INFORMATION
  Report Type: Spontaneous
  Country: GB (occurrence: GB)
  Receive Date: 20140519
  Receipt Date: 20140519
  Transmission Date: 20141212
  Serious: Yes (Other)
  Sender: FDA-Public Use
  Company Number: GB-MYLANLABS-2014S1010522

PATIENT
  Age: 69 Year
  Sex: Female

DRUGS (7)
  1. OMEPRAZOLE [Suspect]
     Indication: GASTROOESOPHAGEAL REFLUX DISEASE
  2. CO-CODAMOL [Concomitant]
     Dosage: 8/500 FOUR TIMES A DAY AS REQUIRED.
  3. PROPRANOLOL [Concomitant]
  4. CITALOPRAM [Concomitant]
  5. LOSARTAN [Concomitant]
  6. DOXAZOSIN [Concomitant]
  7. AMLODIPINE [Concomitant]

REACTIONS (4)
  - Rash generalised [Recovering/Resolving]
  - Skin swelling [Unknown]
  - Skin warm [Unknown]
  - Staphylococcal infection [Unknown]
